FAERS Safety Report 6102253-0 (Version None)
Quarter: 2009Q1

REPORT INFORMATION
  Report Type: 
  Country: None (occurrence: None)
  Receive Date: 20090304
  Receipt Date: 20090225
  Transmission Date: 20090719
  Serious: Yes (Hospitalization)
  Sender: FDA-Public Use
  Company Number: US-GILEAD-2009-0020561

PATIENT
  Sex: Male

DRUGS (19)
  1. LETAIRIS [Suspect]
     Indication: PULMONARY ARTERIAL HYPERTENSION
     Route: 048
  2. METOPROLOL SUCCINATE [Concomitant]
  3. PLAVIX [Concomitant]
  4. WARFARIN SODIUM [Concomitant]
  5. LASIX [Concomitant]
  6. ASPIRIN [Concomitant]
  7. AMIODARONE HCL [Concomitant]
  8. ZAROXOLYN [Concomitant]
  9. SPIRONOLACTONE [Concomitant]
  10. METHOTREXATE [Concomitant]
  11. LEVOTHYROXINE SODIUM [Concomitant]
  12. SPIRIVA [Concomitant]
  13. XOPENEX [Concomitant]
  14. ASMACORT [Concomitant]
  15. NEXIUM [Concomitant]
  16. MYSOLINE [Concomitant]
  17. ZEMPLAR [Concomitant]
  18. FOLIC ACID [Concomitant]
  19. KLOR 20 [Concomitant]

REACTIONS (1)
  - RECTAL POLYP [None]
